FAERS Safety Report 14355509 (Version 3)
Quarter: 2018Q2

REPORT INFORMATION
  Report Type: Spontaneous
  Country: US (occurrence: US)
  Receive Date: 20180105
  Receipt Date: 20180611
  Transmission Date: 20180711
  Serious: Yes (Hospitalization)
  Sender: FDA-Public Use
  Company Number: US-DSJP-DSU-2017-140552

PATIENT

DRUGS (1)
  1. BENICAR [Suspect]
     Active Substance: OLMESARTAN MEDOXOMIL
     Indication: PRODUCT USED FOR UNKNOWN INDICATION
     Dosage: 40 MG, QD
     Dates: start: 20100801, end: 20151201

REACTIONS (4)
  - Duodenal ulcer [Unknown]
  - Sprue-like enteropathy [Recovering/Resolving]
  - Upper gastrointestinal haemorrhage [Unknown]
  - Presyncope [Unknown]

NARRATIVE: CASE EVENT DATE: 20110101
